FAERS Safety Report 10062858 (Version 1)
Quarter: 2014Q1

REPORT INFORMATION
  Report Type: Spontaneous
  Country: US (occurrence: None)
  Receive Date: 20140326
  Receipt Date: 20140326
  Transmission Date: 20141002
  Serious: Yes (Death)
  Sender: FDA-Public Use
  Company Number: 2014-00583

PATIENT
  Age: 52 Year
  Sex: Female

DRUGS (4)
  1. TRAMADOL [Suspect]
  2. PAROXETINE [Suspect]
  3. METHADONE [Suspect]
  4. DIPHENHYDRAMINE [Suspect]
     Indication: PRODUCT USED FOR UNKNOWN INDICATION

REACTIONS (1)
  - Drug abuse [None]
